FAERS Safety Report 7747382-0 (Version None)
Quarter: 2011Q3

REPORT INFORMATION
  Report Type: 
  Country: None (occurrence: None)
  Receive Date: 20110913
  Receipt Date: 20110901
  Transmission Date: 20111222
  Serious: Yes (Death)
  Sender: FDA-Public Use
  Company Number: US-GLAXOSMITHKLINE-A0944101A

PATIENT
  Age: 82 Year
  Sex: Female

DRUGS (2)
  1. CORTICOSTEROIDS [Concomitant]
     Indication: MYELODYSPLASTIC SYNDROME
     Dates: start: 20101115
  2. PROMACTA [Suspect]
     Indication: MYELODYSPLASTIC SYNDROME

REACTIONS (1)
  - BLOOD DISORDER [None]
